FAERS Safety Report 10966459 (Version 1)
Quarter: 2015Q1

REPORT INFORMATION
  Report Type: Spontaneous
  Country: FR (occurrence: FR)
  Receive Date: 20150330
  Receipt Date: 20150330
  Transmission Date: 20150721
  Serious: Yes (Hospitalization)
  Sender: FDA-Public Use
  Company Number: FR-ASTRAZENECA-2015SE27292

PATIENT
  Age: 26110 Day
  Sex: Female

DRUGS (5)
  1. LYRICA [Concomitant]
     Active Substance: PREGABALIN
  2. TARCEVA [Concomitant]
     Active Substance: ERLOTINIB HYDROCHLORIDE
  3. LIDOCAINE AGUETTANT [Suspect]
     Active Substance: LIDOCAINE
     Dosage: 1 % ONCE/SINGLE ADMINISTRATION, NON-ASTRAZENECA PRODUCT
     Route: 045
     Dates: start: 20141110, end: 20141110
  4. XYLOCAINE NEBULIZATION [Suspect]
     Active Substance: LIDOCAINE HYDROCHLORIDE
     Route: 045
     Dates: start: 20141110, end: 20141110
  5. FLECAINE [Concomitant]
     Active Substance: FLECAINIDE

REACTIONS (3)
  - Nervous system disorder [Recovered/Resolved]
  - Hemiparesis [Recovered/Resolved]
  - Disturbance in attention [Recovered/Resolved]

NARRATIVE: CASE EVENT DATE: 20141110
